FAERS Safety Report 4463535-1 (Version None)
Quarter: 2004Q3

REPORT INFORMATION
  Report Type: 
  Country: None (occurrence: None)
  Receive Date: 20040928
  Receipt Date: 20040915
  Transmission Date: 20050211
  Serious: Yes (Hospitalization, Disabling)
  Sender: FDA-Public Use
  Company Number: 2004CG01830

PATIENT
  Age: 61 Year
  Sex: Female

DRUGS (2)
  1. IRESSA [Suspect]
     Indication: BREAST CANCER METASTATIC
     Dosage: 250 MG QD PO
     Route: 048
     Dates: start: 20040625
  2. TAXOTERE [Suspect]
     Indication: BREAST CANCER METASTATIC
     Dosage: 120 MG Q3WK IV
     Route: 042
     Dates: start: 20040625

REACTIONS (6)
  - DEHYDRATION [None]
  - DIARRHOEA [None]
  - DISEASE PROGRESSION [None]
  - GENERAL PHYSICAL HEALTH DETERIORATION [None]
  - UTERINE DISORDER [None]
  - VOMITING [None]
